FAERS Safety Report 23308861 (Version 1)
Quarter: 2023Q4

REPORT INFORMATION
  Report Type: Spontaneous
  Country: US (occurrence: None)
  Receive Date: 20231215
  Receipt Date: 20231215
  Transmission Date: 20240109
  Serious: No
  Sender: FDA-Public Use
  Company Number: None

PATIENT
  Age: 43 Year
  Sex: Female
  Weight: 71.21 kg

DRUGS (1)
  1. RINVOQ [Suspect]
     Active Substance: UPADACITINIB
     Indication: Rheumatoid arthritis
     Dosage: FREQUENCY : AS DIRECTED;?
     Route: 048
     Dates: start: 202307

REACTIONS (7)
  - Viral infection [None]
  - Nasopharyngitis [None]
  - Influenza [None]
  - COVID-19 [None]
  - Pneumonia [None]
  - Therapy interrupted [None]
  - Insurance issue [None]
